FAERS Safety Report 10429072 (Version 2)
Quarter: 2014Q4

REPORT INFORMATION
  Report Type: Spontaneous
  Country: US (occurrence: US)
  Receive Date: 20140904
  Receipt Date: 20141017
  Transmission Date: 20150528
  Serious: No
  Sender: FDA-Public Use
  Company Number: US-AMGEN INC.-USASP2014066308

PATIENT
  Age: 64 Year
  Sex: Male
  Weight: 73.92 kg

DRUGS (1)
  1. ENBREL [Suspect]
     Active Substance: ETANERCEPT
     Indication: RHEUMATOID ARTHRITIS
     Dosage: 50 MG/ML (.98 ML), QWK
     Route: 058
     Dates: start: 20130501

REACTIONS (2)
  - Injection site bruising [Unknown]
  - Injection site swelling [Unknown]
